FAERS Safety Report 4754544-3 (Version None)
Quarter: 2005Q3

REPORT INFORMATION
  Report Type: 
  Country: None (occurrence: None)
  Receive Date: 20050825
  Receipt Date: 20050825
  Transmission Date: 20060218
  Serious: Yes (Hospitalization)
  Sender: FDA-Public Use
  Company Number: None

PATIENT
  Age: 62 Year
  Sex: Male
  Weight: 70 kg

DRUGS (4)
  1. KETEK [Suspect]
     Indication: PNEUMONIA
     Dosage: 400 MG   PO   PO
     Route: 048
     Dates: start: 20050821, end: 20050823
  2. TRAZODONE [Concomitant]
  3. ZOLOFT [Concomitant]
  4. METOPROLOL [Concomitant]

REACTIONS (4)
  - DISEASE PROGRESSION [None]
  - HAEMOPTYSIS [None]
  - INTERNATIONAL NORMALISED RATIO INCREASED [None]
  - PNEUMONIA [None]
